FAERS Safety Report 6327856-X (Version None)
Quarter: 2009Q3

REPORT INFORMATION
  Report Type: 
  Country: None (occurrence: None)
  Receive Date: 20090824
  Receipt Date: 20090811
  Transmission Date: 20100115
  Serious: Yes (Hospitalization, Other)
  Sender: FDA-Public Use
  Company Number: 2009AL005390

PATIENT
  Age: 51 Year
  Sex: Female

DRUGS (12)
  1. IBUPROFEN [Suspect]
     Indication: PAIN
     Dosage: 400 MG; TID; PO
     Route: 048
     Dates: start: 20060301
  2. FUROSEMIDE [Suspect]
  3. RISPERIDONE [Concomitant]
  4. AMITRIPTYLINE [Concomitant]
  5. VALPROIC ACID [Concomitant]
  6. LANSOPRAZOLE [Concomitant]
  7. DIHYDROCODEINE BITARTRATE INJ [Concomitant]
  8. PARACETAMOL [Concomitant]
  9. MAXEPA [Concomitant]
  10. NULYTELY [Concomitant]
  11. LACTULOSE [Concomitant]
  12. FYBOGEL [Concomitant]

REACTIONS (3)
  - BLOOD OSMOLARITY DECREASED [None]
  - BURNING SENSATION [None]
  - HYPONATRAEMIA [None]
